FAERS Safety Report 4732247-9 (Version None)
Quarter: 2005Q3

REPORT INFORMATION
  Report Type: 
  Country: None (occurrence: None)
  Receive Date: 20050726
  Receipt Date: 20040213
  Transmission Date: 20060218
  Serious: Yes (Death, Life-Threatening)
  Sender: FDA-Public Use
  Company Number: 04GER0022

PATIENT
  Age: 46 Year
  Sex: Female

DRUGS (2)
  1. AGGRASTAT [Suspect]
     Indication: CORONARY ARTERIAL STENT INSERTION
     Dosage: INTRAVENOUS
     Route: 042
     Dates: start: 20031201, end: 20031201
  2. HEPARIN [Concomitant]

REACTIONS (1)
  - GINGIVAL BLEEDING [None]
